FAERS Safety Report 4524846-4 (Version None)
Quarter: 2004Q4

REPORT INFORMATION
  Report Type: 
  Country: None (occurrence: None)
  Receive Date: 20041213
  Receipt Date: 20041130
  Transmission Date: 20050328
  Serious: Yes (Hospitalization, Other)
  Sender: FDA-Public Use
  Company Number: US-NOVOPROD-240845

PATIENT
  Age: 21 Year
  Sex: Female
  Weight: 50 kg

DRUGS (3)
  1. NOVOSEVEN [Suspect]
     Indication: INTRA-ABDOMINAL HAEMORRHAGE
     Dosage: 4.8 MG (SEVEN DOSES)
     Route: 042
     Dates: start: 20041101, end: 20041101
  2. HEPARIN [Concomitant]
     Indication: PROPHYLAXIS
     Route: 042
     Dates: end: 20041101
  3. LEPIRUDIN [Concomitant]
     Indication: THROMBOCYTOPENIA
     Route: 042
     Dates: start: 20041101, end: 20041101

REACTIONS (1)
  - PULMONARY EMBOLISM [None]
